FAERS Safety Report 7700219-8 (Version None)
Quarter: 2011Q3

REPORT INFORMATION
  Report Type: 
  Country: None (occurrence: None)
  Receive Date: 20110816
  Receipt Date: 20110801
  Transmission Date: 20111222
  Serious: Yes (Hospitalization)
  Sender: FDA-Public Use
  Company Number: UTC-009157

PATIENT
  Age: 62 Year
  Sex: Female
  Weight: 69 kg

DRUGS (3)
  1. TYVASO [Suspect]
     Indication: SARCOIDOSIS
     Dosage: 216, 120 MCG (54, 30 MCG, 4 IN 1 D) INHALATION
     Route: 055
     Dates: start: 20100426
  2. TYVASO [Suspect]
     Indication: SARCOIDOSIS
     Dosage: 216, 120 MCG (54, 30 MCG, 4 IN 1 D) INHALATION
     Route: 055
     Dates: start: 20110701
  3. REVATIO [Concomitant]

REACTIONS (1)
  - BURNING SENSATION [None]
